FAERS Safety Report 9485940 (Version 1)
Quarter: 2013Q3

REPORT INFORMATION
  Report Type: Spontaneous
  Country: US (occurrence: None)
  Receive Date: 20130827
  Receipt Date: 20130827
  Transmission Date: 20140515
  Serious: No
  Sender: FDA-Public Use
  Company Number: None

PATIENT
  Age: 63 Year
  Sex: Male

DRUGS (2)
  1. VELCADE MILLENNIUM [Suspect]
     Indication: PLASMA CELL MYELOMA
     Route: 058
     Dates: start: 201209, end: 201212
  2. REVLIMID CELGENE [Suspect]
     Indication: PLASMA CELL MYELOMA
     Dates: start: 201209, end: 201212

REACTIONS (1)
  - Neuropathy peripheral [None]
